FAERS Safety Report 15832740 (Version 1)
Quarter: 2019Q1

REPORT INFORMATION
  Report Type: Spontaneous
  Country: US (occurrence: US)
  Receive Date: 20190116
  Receipt Date: 20190116
  Transmission Date: 20190417
  Serious: Yes (Hospitalization, Other)
  Sender: FDA-Public Use
  Company Number: None

PATIENT
  Age: 65 Year
  Sex: Female
  Weight: 90 kg

DRUGS (8)
  1. GAVILAX [Suspect]
     Active Substance: POLYETHYLENE GLYCOL 3350
     Indication: CONSTIPATION
     Dosage: ?          QUANTITY:1 TABLESPOON(S);?
     Route: 048
     Dates: start: 20181228, end: 20190106
  2. ZOCOR [Concomitant]
     Active Substance: SIMVASTATIN
  3. VIT-D [Concomitant]
  4. SUCRALFATE. [Concomitant]
     Active Substance: SUCRALFATE
  5. ONE-A-DAY NOS [Concomitant]
     Active Substance: MINERALS\VITAMINS
  6. CLONOPIN [Concomitant]
     Active Substance: CLONAZEPAM
  7. TYLANOL [Concomitant]
  8. ELAVIL [Concomitant]
     Active Substance: AMITRIPTYLINE HYDROCHLORIDE

REACTIONS (4)
  - Panic attack [None]
  - Feeling abnormal [None]
  - Fall [None]
  - Asthenia [None]

NARRATIVE: CASE EVENT DATE: 20190106
